FAERS Safety Report 4674066-8 (Version None)
Quarter: 2005Q2

REPORT INFORMATION
  Report Type: 
  Country: None (occurrence: None)
  Receive Date: 20050525
  Receipt Date: 20050513
  Transmission Date: 20051028
  Serious: Yes (Hospitalization, Other)
  Sender: FDA-Public Use
  Company Number: KII-2005-0016638

PATIENT
  Age: 56 Year
  Sex: Female

DRUGS (25)
  1. OXYCONTIN [Suspect]
     Indication: PAIN
  2. GABAPENTIN [Suspect]
  3. METAXALONE [Suspect]
  4. ORUBAL [Suspect]
  5. ZOLPIDEM [Suspect]
  6. CLONAZEPAM [Suspect]
  7. MODAFINIL [Suspect]
  8. ORAL ANTIDIABETICS [Suspect]
  9. BIGUANIDES [Suspect]
  10. NIACIN [Suspect]
  11. ACE INHIBITOR [Suspect]
  12. LIDOCAINE [Suspect]
  13. THIAZIDES [Suspect]
  14. SSRI [Suspect]
  15. ANTIDEPRESSANTS [Suspect]
  16. ANTIHISTAMINES FOR SYSTEMIC USE [Suspect]
  17. ANTIBIOTICS [Suspect]
  18. MONISTAT [Suspect]
  19. NORETHINDRONE (NORETHISTERONE) [Suspect]
  20. ALBUTEROL SULFATE [Suspect]
  21. TERBUTALINE AND OTHER BETA-2 AGONIST [Suspect]
  22. WARFARIN SODIUM [Suspect]
  23. FENTANYL [Suspect]
  24. RHINOCORT AQUA (BUDESONIDE) [Suspect]
  25. ETHANOL(ETHANOL) [Suspect]

REACTIONS (21)
  - AGITATION [None]
  - ALANINE AMINOTRANSFERASE INCREASED [None]
  - ANION GAP INCREASED [None]
  - ASPARTATE AMINOTRANSFERASE INCREASED [None]
  - BLOOD AMYLASE INCREASED [None]
  - BLOOD BICARBONATE DECREASED [None]
  - BLOOD CREATINE PHOSPHOKINASE INCREASED [None]
  - BLOOD CREATINE PHOSPHOKINASE MB INCREASED [None]
  - BLOOD CREATININE INCREASED [None]
  - BLOOD GLUCOSE INCREASED [None]
  - BLOOD LACTATE DEHYDROGENASE INCREASED [None]
  - BLOOD PH DECREASED [None]
  - BLOOD POTASSIUM INCREASED [None]
  - BLOOD UREA INCREASED [None]
  - COMA [None]
  - DRUG SCREEN POSITIVE [None]
  - HAEMODIALYSIS [None]
  - HAEMOGLOBIN DECREASED [None]
  - LIPASE INCREASED [None]
  - PROTHROMBIN TIME PROLONGED [None]
  - RENAL FUNCTION TEST ABNORMAL [None]
